FAERS Safety Report 6110131-6 (Version None)
Quarter: 2009Q1

REPORT INFORMATION
  Report Type: 
  Country: None (occurrence: None)
  Receive Date: 20090310
  Receipt Date: 20090224
  Transmission Date: 20090719
  Serious: Yes (Death, Other)
  Sender: FDA-Public Use
  Company Number: IE-AVENTIS-200911069EU

PATIENT
  Age: 89 Year
  Sex: Male

DRUGS (5)
  1. CLEXANE [Suspect]
     Indication: MYOCARDIAL INFARCTION
     Dosage: DOSE: UNK
     Dates: start: 20090101, end: 20090101
  2. PLAVIX [Suspect]
     Indication: MYOCARDIAL INFARCTION
     Dates: start: 20090101, end: 20090101
  3. PLAVIX [Suspect]
     Dates: start: 20090101, end: 20090101
  4. ASPIRIN [Suspect]
     Indication: MYOCARDIAL INFARCTION
     Dates: start: 20090101, end: 20090101
  5. ASPIRIN [Suspect]
     Dates: start: 20090101, end: 20090101

REACTIONS (3)
  - HAEMATURIA [None]
  - MELAENA [None]
  - MYOCARDIAL INFARCTION [None]
